FAERS Safety Report 5936830-4 (Version None)
Quarter: 2008Q4

REPORT INFORMATION
  Report Type: 
  Country: None (occurrence: None)
  Receive Date: 20081029
  Receipt Date: 20081024
  Transmission Date: 20090506
  Serious: Yes (Death)
  Sender: FDA-Public Use
  Company Number: 15484

PATIENT
  Age: 67 Year
  Sex: Female

DRUGS (7)
  1. MORPHINE SULFATE [Suspect]
     Indication: PAIN
  2. ALPRAZOLAM [Concomitant]
  3. ACETAMINOPHEN [Concomitant]
  4. CYCLOBENZAPRINE HCL [Concomitant]
  5. TRAZODONE HCL [Concomitant]
  6. HYDROCODONE [Concomitant]
  7. HYDROMORPHONE HCL [Concomitant]

REACTIONS (2)
  - DRUG TOXICITY [None]
  - PRODUCT QUALITY ISSUE [None]
